FAERS Safety Report 16038924 (Version 2)
Quarter: 2019Q1

REPORT INFORMATION
  Report Type: Spontaneous
  Country: DZ (occurrence: DZ)
  Receive Date: 20190306
  Receipt Date: 20190310
  Transmission Date: 20190418
  Serious: Yes (Other)
  Sender: FDA-Public Use
  Company Number: PHHY2019DZ047498

PATIENT
  Age: 60 Year
  Sex: Female

DRUGS (3)
  1. IRBESARTAN. [Concomitant]
     Active Substance: IRBESARTAN
     Indication: PRODUCT USED FOR UNKNOWN INDICATION
     Dosage: UNK
     Route: 065
  2. INSULIN [Concomitant]
     Active Substance: INSULIN NOS
     Indication: PRODUCT USED FOR UNKNOWN INDICATION
     Dosage: UNK
     Route: 065
  3. VOTRIENT [Suspect]
     Active Substance: PAZOPANIB HYDROCHLORIDE
     Indication: RENAL CANCER METASTATIC
     Dosage: 800 MG, UNK
     Route: 065
     Dates: start: 20190108, end: 20190128

REACTIONS (3)
  - Diarrhoea [Unknown]
  - Mucosal inflammation [Unknown]
  - Palmar-plantar erythrodysaesthesia syndrome [Unknown]
